FAERS Safety Report 7026893-X (Version None)
Quarter: 2010Q4

REPORT INFORMATION
  Report Type: 
  Country: None (occurrence: None)
  Receive Date: 20101004
  Receipt Date: 20100924
  Transmission Date: 20110411
  Serious: Yes (Life-Threatening, Hospitalization, Disabling, Other)
  Sender: FDA-Public Use
  Company Number: A0883231A

PATIENT
  Age: 73 Year
  Sex: Female

DRUGS (5)
  1. LAMICTAL [Suspect]
     Indication: SCHIZOAFFECTIVE DISORDER
     Dosage: 100MG PER DAY
     Route: 048
     Dates: start: 20090919, end: 20091127
  2. CLINDAMYCIN [Suspect]
     Indication: ORAL INFECTION
     Dates: start: 20091123
  3. VALPROATE SODIUM [Concomitant]
  4. MELLARIL [Concomitant]
  5. LUNESTA [Concomitant]

REACTIONS (9)
  - ADVERSE EVENT [None]
  - FALL [None]
  - HEAD INJURY [None]
  - INFECTION [None]
  - NEUTROPENIA [None]
  - PHARYNGITIS [None]
  - SKIN NECROSIS [None]
  - TONGUE DISORDER [None]
  - WHITE BLOOD CELL COUNT DECREASED [None]
